FAERS Safety Report 11804562 (Version 1)
Quarter: 2015Q4

REPORT INFORMATION
  Report Type: Report from Study
  Country: FI (occurrence: FI)
  Receive Date: 20151204
  Receipt Date: 20151204
  Transmission Date: 20160305
  Serious: Yes (Hospitalization, Disabling)
  Sender: FDA-Public Use
  Company Number: FI-B.I. PHARMACEUTICALS,INC./RIDGEFIELD-2015-BI-60365BI

PATIENT
  Age: 67 Year
  Sex: Male
  Weight: 84 kg

DRUGS (5)
  1. ASPIRIN. [Suspect]
     Active Substance: ASPIRIN
     Indication: CORONARY ARTERY DISEASE
     Dosage: 100 MG
     Route: 065
     Dates: start: 20150502
  2. WARFARIN [Suspect]
     Active Substance: WARFARIN
     Indication: ATRIAL FIBRILLATION
     Dosage: DAILY DOSE: 5MG PRN
     Route: 048
     Dates: start: 20150505, end: 20150506
  3. CLOPIDOGREL [Suspect]
     Active Substance: CLOPIDOGREL BISULFATE
     Indication: CORONARY ARTERY DISEASE
     Dosage: 75 MG
     Route: 065
     Dates: start: 20150502
  4. LMWH [Suspect]
     Active Substance: UNSPECIFIED INGREDIENT
     Indication: CORONARY ARTERY DISEASE
     Route: 065
     Dates: start: 20150502, end: 20150507
  5. LMWH [Suspect]
     Active Substance: UNSPECIFIED INGREDIENT
     Indication: FRIEDREICH^S ATAXIA

REACTIONS (5)
  - Eye haemorrhage [None]
  - Retinal cryoablation [Recovered/Resolved]
  - Glaucoma [None]
  - Syncope [Recovered/Resolved]
  - Retinal detachment [Recovered/Resolved]

NARRATIVE: CASE EVENT DATE: 20150506
